FAERS Safety Report 14380226 (Version 1)
Quarter: 2018Q1

REPORT INFORMATION
  Report Type: Spontaneous
  Country: US (occurrence: US)
  Receive Date: 20180111
  Receipt Date: 20180111
  Transmission Date: 20180509
  Serious: Yes (Disabling)
  Sender: FDA-Public Use
  Company Number: None

PATIENT
  Sex: Female
  Weight: 60.75 kg

DRUGS (2)
  1. SULFAMETH/TMP 800/160MG TABLET (GENERIC EQUIVALENT TO BACTRIM DS) [Suspect]
     Active Substance: SULFAMETHOXAZOLE\TRIMETHOPRIM
     Indication: KIDNEY INFECTION
     Dosage: ?          QUANTITY:20 TABLET(S);?
     Route: 048
     Dates: start: 20180104, end: 20180107
  2. BACTRIM DS [Suspect]
     Active Substance: SULFAMETHOXAZOLE\TRIMETHOPRIM

REACTIONS (12)
  - Mouth swelling [None]
  - Fatigue [None]
  - Fungal infection [None]
  - Blister [None]
  - Nausea [None]
  - Chemical burn [None]
  - Stomatitis [None]
  - Gingival swelling [None]
  - Pain in extremity [None]
  - Abdominal pain upper [None]
  - Irritability [None]
  - Decreased appetite [None]

NARRATIVE: CASE EVENT DATE: 20180106
